FAERS Safety Report 20485498 (Version 4)
Quarter: 2022Q4

REPORT INFORMATION
  Report Type: Spontaneous
  Country: US (occurrence: US)
  Receive Date: 20220217
  Receipt Date: 20221107
  Transmission Date: 20230113
  Serious: Yes (Hospitalization, Other)
  Sender: FDA-Public Use
  Company Number: US-PFIZER INC-202101628776

PATIENT
  Age: 57 Year
  Sex: Female

DRUGS (1)
  1. XELJANZ XR [Suspect]
     Active Substance: TOFACITINIB CITRATE
     Dosage: 11 MG, 1X/DAY
     Route: 048
     Dates: start: 20211109

REACTIONS (7)
  - Thrombosis [Unknown]
  - Pneumonia [Unknown]
  - Drug ineffective [Unknown]
  - Nausea [Unknown]
  - Abdominal discomfort [Unknown]
  - Rhinorrhoea [Unknown]
  - Illness [Unknown]

NARRATIVE: CASE EVENT DATE: 20210101
